FAERS Safety Report 6407439-3 (Version None)
Quarter: 2009Q4

REPORT INFORMATION
  Report Type: 
  Country: None (occurrence: None)
  Receive Date: 20091020
  Receipt Date: 20091016
  Transmission Date: 20100525
  Serious: Yes (Life-Threatening, Hospitalization)
  Sender: FDA-Public Use
  Company Number: FR-B.I. PHARMACEUTICALS,INC./RIDGEFIELD-2009-FF-00712FF

PATIENT
  Age: 68 Year
  Sex: Female

DRUGS (7)
  1. MICARDIS HCT [Suspect]
     Indication: HYPERTENSION
     Dosage: 80/12.5 MG
     Dates: end: 20090828
  2. TRUSOPT [Concomitant]
  3. ARTELAC [Concomitant]
  4. XALATAN [Concomitant]
  5. PRAZEPAM [Concomitant]
  6. GELUPRANE [Concomitant]
  7. PRAVASTATIN [Concomitant]

REACTIONS (1)
  - HYPONATRAEMIA [None]
